FAERS Safety Report 6635254-4 (Version None)
Quarter: 2010Q1

REPORT INFORMATION
  Report Type: 
  Country: None (occurrence: None)
  Receive Date: 20100315
  Receipt Date: 20100303
  Transmission Date: 20100710
  Serious: Yes (Other)
  Sender: FDA-Public Use
  Company Number: JP-PFIZER INC-2010028367

PATIENT
  Age: 61 Year
  Sex: Female

DRUGS (3)
  1. EPIRUBICIN HYDROCHLORIDE [Suspect]
     Indication: HEPATIC NEOPLASM MALIGNANT
     Dosage: UNK
  2. LIPIODOL [Concomitant]
     Dosage: UNK
  3. GELATIN [Concomitant]
     Dosage: UNK

REACTIONS (1)
  - SKIN ULCER [None]
